FAERS Safety Report 16186774 (Version 1)
Quarter: 2019Q2

REPORT INFORMATION
  Report Type: Spontaneous
  Country: BE (occurrence: BE)
  Receive Date: 20190411
  Receipt Date: 20190411
  Transmission Date: 20190711
  Serious: Yes (Hospitalization, Other)
  Sender: FDA-Public Use
  Company Number: PHHY2018BE170492

PATIENT
  Age: 45 Year
  Sex: Female

DRUGS (2)
  1. ADALIMUMAB [Suspect]
     Active Substance: ADALIMUMAB
     Indication: PSORIASIS
     Dosage: 40 MG, BIW
     Route: 065
  2. PANTOPRAZOLE [Suspect]
     Active Substance: PANTOPRAZOLE
     Indication: PRODUCT USED FOR UNKNOWN INDICATION
     Dosage: 40 MG, QD
     Route: 065

REACTIONS (10)
  - Pyelonephritis acute [Recovering/Resolving]
  - Escherichia infection [Recovering/Resolving]
  - Tubulointerstitial nephritis [Recovering/Resolving]
  - Urinary tract obstruction [Recovering/Resolving]
  - Tuberculosis [Unknown]
  - Sepsis [Recovering/Resolving]
  - Blood creatinine increased [Recovering/Resolving]
  - Urinary tract infection [Recovering/Resolving]
  - Proteinuria [Unknown]
  - Acute kidney injury [Recovering/Resolving]
